FAERS Safety Report 11871961 (Version 1)
Quarter: 2015Q4

REPORT INFORMATION
  Report Type: Spontaneous
  Country: FR (occurrence: FR)
  Receive Date: 20151228
  Receipt Date: 20151228
  Transmission Date: 20160305
  Serious: Yes (Other)
  Sender: FDA-Public Use
  Company Number: FR-TAKEDA-2015TUS018171

PATIENT
  Sex: Female

DRUGS (2)
  1. METFORMINE [Concomitant]
     Active Substance: METFORMIN HYDROCHLORIDE
     Indication: TYPE 2 DIABETES MELLITUS
     Dosage: UNK
  2. ENTYVIO [Suspect]
     Active Substance: VEDOLIZUMAB
     Indication: ENTEROCOLITIS HAEMORRHAGIC
     Dosage: UNK
     Route: 042
     Dates: start: 2015

REACTIONS (4)
  - Eye oedema [Recovered/Resolved]
  - Epistaxis [Recovered/Resolved]
  - Pharyngitis [Recovered/Resolved]
  - Nasal oedema [Recovered/Resolved]

NARRATIVE: CASE EVENT DATE: 2015
